FAERS Safety Report 8271891-1 (Version None)
Quarter: 2012Q2

REPORT INFORMATION
  Report Type: 
  Country: None (occurrence: None)
  Receive Date: 20120410
  Receipt Date: 20120402
  Transmission Date: 20120825
  Serious: Yes (Other)
  Sender: FDA-Public Use
  Company Number: US-ALEXION-A201200013

PATIENT
  Sex: Male
  Weight: 76 kg

DRUGS (8)
  1. PREDNISONE TAB [Concomitant]
     Dosage: 10 MG, UNK
  2. RESTORIL [Concomitant]
     Dosage: 30 MG, UNK
  3. DRISDOL [Concomitant]
     Dosage: 5000 IU, UNK
  4. CARTIA XT [Concomitant]
     Dosage: 180 MG, UNK
  5. IRON W/FOLIC ACID [Concomitant]
     Dosage: UNK
  6. SOLIRIS [Suspect]
     Indication: PAROXYSMAL NOCTURNAL HAEMOGLOBINURIA
     Dosage: 900 MG, Q2W
     Route: 042
     Dates: start: 20070831
  7. PRILOSEC [Concomitant]
     Dosage: 40 MG, UNK
  8. LANTUS [Concomitant]
     Dosage: UNK

REACTIONS (6)
  - NAUSEA [None]
  - PNEUMOBILIA [None]
  - HEPATIC CYST [None]
  - CARCINOID TUMOUR [None]
  - VOMITING [None]
  - ABDOMINAL PAIN [None]
